FAERS Safety Report 8168895-6 (Version None)
Quarter: 2012Q1

REPORT INFORMATION
  Report Type: 
  Country: None (occurrence: None)
  Receive Date: 20120227
  Receipt Date: 20120221
  Transmission Date: 20120608
  Serious: Yes (Disabling)
  Sender: FDA-Public Use
  Company Number: CA-B.I. PHARMACEUTICALS,INC./RIDGEFIELD-2012-CN-00427CN

PATIENT
  Sex: Female

DRUGS (4)
  1. BISOPROLOL FUMARATE [Concomitant]
     Dosage: 5 MG
  2. TYLENOL PM WITH BENADRYL [Concomitant]
  3. VITAMIN B-12 [Concomitant]
  4. PRADAXA [Suspect]
     Indication: ATRIAL FIBRILLATION
     Dosage: 300 MG
     Dates: start: 20110228

REACTIONS (1)
  - HYPERHIDROSIS [None]
